FAERS Safety Report 8357698-5 (Version None)
Quarter: 2012Q2

REPORT INFORMATION
  Report Type: 
  Country: None (occurrence: None)
  Receive Date: 20120514
  Receipt Date: 20120504
  Transmission Date: 20120825
  Serious: Yes (Hospitalization, Other)
  Sender: FDA-Public Use
  Company Number: US-MERCK-1109USA00702

PATIENT
  Age: 50 Year
  Sex: Female
  Weight: 43 kg

DRUGS (5)
  1. FOSAMAX [Suspect]
     Route: 048
     Dates: start: 20080201, end: 20090901
  2. FOSAMAX [Suspect]
     Route: 048
     Dates: start: 19971103
  3. ALENDRONATE SODIUM [Suspect]
     Indication: OSTEOPOROSIS
     Route: 048
     Dates: start: 20080920, end: 20090801
  4. FOSAMAX [Suspect]
     Indication: OSTEOPOROSIS
     Route: 048
     Dates: start: 19970701, end: 20080101
  5. CALCIUM (UNSPECIFIED) [Concomitant]
     Route: 065
     Dates: start: 20090101

REACTIONS (43)
  - RIB FRACTURE [None]
  - DYSARTHRIA [None]
  - RIB DEFORMITY [None]
  - VISION BLURRED [None]
  - WEIGHT INCREASED [None]
  - DIPLOPIA [None]
  - FOOT FRACTURE [None]
  - SWELLING FACE [None]
  - MEIBOMIAN GLAND DYSFUNCTION [None]
  - IVTH NERVE PARALYSIS [None]
  - LOSS OF CONSCIOUSNESS [None]
  - SYNCOPE [None]
  - FRACTURE NONUNION [None]
  - DEPRESSION [None]
  - FEMUR FRACTURE [None]
  - HYDROCEPHALUS [None]
  - ADVERSE DRUG REACTION [None]
  - AMNESIA [None]
  - KYPHOSCOLIOSIS [None]
  - HYPERLIPIDAEMIA [None]
  - BLOOD CHOLESTEROL INCREASED [None]
  - ANXIETY [None]
  - BRAIN CONTUSION [None]
  - TRANSIENT GLOBAL AMNESIA [None]
  - ABSCESS JAW [None]
  - HYPERTENSION [None]
  - CAROTID INTIMA-MEDIA THICKNESS INCREASED [None]
  - CONVULSION [None]
  - FACIAL PARESIS [None]
  - LIMB INJURY [None]
  - LOW TURNOVER OSTEOPATHY [None]
  - HYPERCHOLESTEROLAEMIA [None]
  - SUBDURAL HAEMATOMA [None]
  - ROAD TRAFFIC ACCIDENT [None]
  - CEREBRAL DISORDER [None]
  - SEXUAL ABUSE [None]
  - VISUAL IMPAIRMENT [None]
  - SHUNT MALFUNCTION [None]
  - ABDOMINAL DISTENSION [None]
  - ALCOHOL ABUSE [None]
  - DIARRHOEA [None]
  - COMPRESSION FRACTURE [None]
  - ALTERED VISUAL DEPTH PERCEPTION [None]
